FAERS Safety Report 4616094-4 (Version None)
Quarter: 2005Q1

REPORT INFORMATION
  Report Type: 
  Country: None (occurrence: None)
  Receive Date: 20050323
  Receipt Date: 20050305
  Transmission Date: 20050727
  Serious: Yes (Hospitalization)
  Sender: FDA-Public Use
  Company Number: 200510724JP

PATIENT
  Age: 47 Year
  Sex: Male
  Weight: 52.5 kg

DRUGS (9)
  1. ARAVA [Suspect]
     Indication: RHEUMATOID ARTHRITIS
     Route: 048
     Dates: start: 20040805, end: 20050305
  2. BLOPRESS [Suspect]
     Indication: HYPERTENSION
     Route: 048
     Dates: start: 20041209, end: 20050305
  3. HYPEN [Suspect]
     Indication: RHEUMATOID ARTHRITIS
     Route: 048
     Dates: start: 19990224, end: 20050305
  4. LOXONIN [Suspect]
     Indication: NASOPHARYNGITIS
     Route: 048
     Dates: start: 20050302, end: 20050305
  5. CRAVIT [Suspect]
     Indication: NASOPHARYNGITIS
     Route: 048
     Dates: start: 20050302, end: 20050305
  6. PL GRAN. [Suspect]
     Indication: NASOPHARYNGITIS
     Route: 048
     Dates: start: 20050302, end: 20050305
  7. CYTOTEC [Concomitant]
     Indication: GASTRIC ULCER
     Route: 048
     Dates: start: 19990224
  8. PREDONINE [Concomitant]
     Indication: RHEUMATOID ARTHRITIS
     Route: 048
     Dates: start: 20040604
  9. SELBEX [Concomitant]
     Indication: NASOPHARYNGITIS
     Route: 048
     Dates: start: 20050302, end: 20050305

REACTIONS (9)
  - ANOREXIA [None]
  - ANURIA [None]
  - DEHYDRATION [None]
  - DIARRHOEA [None]
  - HEADACHE [None]
  - LIVER DISORDER [None]
  - NASOPHARYNGITIS [None]
  - PYREXIA [None]
  - RENAL FAILURE ACUTE [None]
